FAERS Safety Report 25467671 (Version 2)
Quarter: 2025Q2

REPORT INFORMATION
  Report Type: Spontaneous
  Country: CH (occurrence: CH)
  Receive Date: 20250623
  Receipt Date: 20250630
  Transmission Date: 20250717
  Serious: Yes (Hospitalization)
  Sender: MYLAN
  Company Number: CH-MYLANLABS-2025M1052114

PATIENT
  Sex: Female

DRUGS (11)
  1. GABAPENTIN [Suspect]
     Active Substance: GABAPENTIN
     Indication: Eye pain
  2. GABAPENTIN [Suspect]
     Active Substance: GABAPENTIN
     Indication: Eye pain
  3. OXYCODONE [Suspect]
     Active Substance: OXYCODONE
     Indication: Eye pain
  4. OXYCODONE [Suspect]
     Active Substance: OXYCODONE
     Indication: Eye pain
  5. METAMIZOLE [Suspect]
     Active Substance: METAMIZOLE
     Indication: Eye pain
  6. METAMIZOLE [Suspect]
     Active Substance: METAMIZOLE
     Indication: Eye pain
  7. Albumin-interferon alpha-2b [Concomitant]
     Indication: Ocular surface squamous neoplasia
  8. MITOMYCIN C [Concomitant]
     Active Substance: MITOMYCIN
     Indication: Ocular surface squamous neoplasia
  9. ALCOHOL [Concomitant]
     Active Substance: ALCOHOL
     Indication: Pain
  10. ALCOHOL [Concomitant]
     Active Substance: ALCOHOL
     Indication: Eye pain
  11. PENTOTHAL [Concomitant]
     Active Substance: THIOPENTAL SODIUM
     Indication: Induction of anaesthesia

REACTIONS (2)
  - Treatment failure [Unknown]
  - Off label use [Unknown]
